FAERS Safety Report 19730185 (Version 2)
Quarter: 2021Q3

REPORT INFORMATION
  Report Type: Spontaneous
  Country: DE (occurrence: DE)
  Receive Date: 20210820
  Receipt Date: 20210831
  Transmission Date: 20211014
  Serious: No
  Sender: FDA-Public Use
  Company Number: DE-HORMOSAN PHARMA GMBH-2021-14917

PATIENT
  Sex: Female

DRUGS (2)
  1. QUETIAPIN?HORMOSAN 150 MG RETARDTABLETTEN [Suspect]
     Active Substance: QUETIAPINE FUMARATE
     Indication: MANIA
     Dosage: 2 DOSAGE FORM, QD
     Route: 048
     Dates: start: 202106, end: 202107
  2. QUETIAPIN?HORMOSAN 300 MG RETARDTABLETTEN [Suspect]
     Active Substance: QUETIAPINE FUMARATE
     Indication: MANIA
     Dosage: 300 MG, QD (AT 8:00 PM, DIRECTLY AFTER DINNER)
     Route: 048
     Dates: start: 2013, end: 202106

REACTIONS (3)
  - Eye pain [Recovered/Resolved]
  - Fatigue [Unknown]
  - Medication error [Unknown]

NARRATIVE: CASE EVENT DATE: 2013
